FAERS Safety Report 6160940-2 (Version None)
Quarter: 2009Q2

REPORT INFORMATION
  Report Type: 
  Country: None (occurrence: None)
  Receive Date: 20090417
  Receipt Date: 20090417
  Transmission Date: 20091009
  Serious: Yes (Disabling, Other)
  Sender: FDA-Public Use
  Company Number: None

PATIENT
  Age: 51 Year
  Sex: Female
  Weight: 58.0604 kg

DRUGS (2)
  1. ELAVIL [Suspect]
     Indication: MIGRAINE
     Dosage: 10 MG - 50 MG 1 DAILY
     Dates: start: 19990101, end: 20050101
  2. AMITRIPTLINE HYDROCHLORIDE TAB [Suspect]
     Indication: MIGRAINE
     Dosage: 10 MG - 50 MG 1 DAILY
     Dates: end: 20090101

REACTIONS (2)
  - AMNESIA [None]
  - THINKING ABNORMAL [None]
